FAERS Safety Report 5118693-2 (Version None)
Quarter: 2006Q3

REPORT INFORMATION
  Report Type: 
  Country: None (occurrence: None)
  Receive Date: 20060927
  Receipt Date: 20060918
  Transmission Date: 20061208
  Serious: Yes (Death, Hospitalization)
  Sender: FDA-Public Use
  Company Number: IE-2006-019289

PATIENT
  Age: 69 Year
  Sex: Male

DRUGS (3)
  1. CAMPATH [Suspect]
     Indication: CHRONIC LYMPHOCYTIC LEUKAEMIA
     Dosage: SEE IMAGE
     Dates: start: 20060401, end: 20060501
  2. CAMPATH [Suspect]
     Indication: CHRONIC LYMPHOCYTIC LEUKAEMIA
     Dosage: SEE IMAGE
     Dates: start: 20060501, end: 20060601
  3. METHYLPREDNISONE [Concomitant]

REACTIONS (12)
  - ACUTE TONSILLITIS [None]
  - ARTERIOSCLEROSIS CORONARY ARTERY [None]
  - CONFUSIONAL STATE [None]
  - DIFFUSE ALVEOLAR DAMAGE [None]
  - FEBRILE NEUTROPENIA [None]
  - MEDIASTINAL DISORDER [None]
  - MULTI-ORGAN FAILURE [None]
  - PULMONARY OEDEMA [None]
  - RENAL FAILURE [None]
  - RENAL TUBULAR NECROSIS [None]
  - RESPIRATORY FAILURE [None]
  - SEPSIS [None]
